FAERS Safety Report 24565179 (Version 2)
Quarter: 2024Q4

REPORT INFORMATION
  Report Type: Spontaneous
  Country: SI (occurrence: SI)
  Receive Date: 20241030
  Receipt Date: 20241127
  Transmission Date: 20250115
  Serious: Yes (Other)
  Sender: BAYER HEALTHCARE PHARMACEUTICALS INC.
  Company Number: SI-BAYER-2024A150933

PATIENT
  Age: 61 Year
  Sex: Male

DRUGS (9)
  1. NUBEQA [Suspect]
     Active Substance: DAROLUTAMIDE
     Indication: Prostate cancer metastatic
     Dosage: UNK
     Dates: start: 202311
  2. NUBEQA [Suspect]
     Active Substance: DAROLUTAMIDE
     Indication: Metastases to bone
  3. NUBEQA [Suspect]
     Active Substance: DAROLUTAMIDE
     Indication: Metastases to lung
  4. NUBEQA [Suspect]
     Active Substance: DAROLUTAMIDE
     Indication: Metastases to retroperitoneum
  5. NUBEQA [Suspect]
     Active Substance: DAROLUTAMIDE
     Indication: Metastases to lymph nodes
  6. NUBEQA [Suspect]
     Active Substance: DAROLUTAMIDE
     Indication: Metastases to peritoneum
  7. ENALAPRIL [Concomitant]
     Active Substance: ENALAPRIL
     Indication: Hypertension
     Dosage: UNK
  8. STELARA [Concomitant]
     Active Substance: USTEKINUMAB
     Indication: Psoriatic arthropathy
     Dosage: UNK
  9. DOCETAXEL [Concomitant]
     Active Substance: DOCETAXEL
     Dosage: UNK
     Dates: start: 202401

REACTIONS (3)
  - Prostate cancer metastatic [None]
  - Metastases to bone [None]
  - Pathological fracture [None]

NARRATIVE: CASE EVENT DATE: 20241001
